FAERS Safety Report 4405436-0 (Version None)
Quarter: 2004Q3

REPORT INFORMATION
  Report Type: 
  Country: None (occurrence: None)
  Receive Date: 20040723
  Receipt Date: 20030822
  Transmission Date: 20050211
  Serious: No
  Sender: FDA-Public Use
  Company Number: US-GLAXOSMITHKLINE-A0423122A

PATIENT
  Age: 72 Year
  Sex: Male

DRUGS (8)
  1. AVANDIA [Suspect]
     Dosage: 4MG PER DAY
     Route: 048
  2. COREG [Concomitant]
  3. PLAVIX [Concomitant]
  4. XANAX [Concomitant]
  5. POTASSIUM [Concomitant]
  6. MULTIVITAMIN [Concomitant]
  7. LASIX [Concomitant]
  8. ZYPREXA [Concomitant]
     Dates: end: 20030822

REACTIONS (3)
  - ASTHENIA [None]
  - BLOOD GLUCOSE INCREASED [None]
  - OEDEMA PERIPHERAL [None]
